FAERS Safety Report 6715230-3 (Version None)
Quarter: 2010Q2

REPORT INFORMATION
  Report Type: 
  Country: None (occurrence: None)
  Receive Date: 20100507
  Receipt Date: 20100427
  Transmission Date: 20101027
  Serious: Yes (Hospitalization, Other)
  Sender: FDA-Public Use
  Company Number: US-PFIZER INC-2010037378

PATIENT
  Sex: Female
  Weight: 77.098 kg

DRUGS (12)
  1. LYRICA [Suspect]
     Indication: PAIN
     Dosage: UNK
     Dates: start: 20091001, end: 20091101
  2. LYRICA [Suspect]
     Dates: start: 20091001
  3. DIOVAN HCT [Concomitant]
     Dosage: UNK
  4. LEVOXYL [Concomitant]
     Dosage: UNK
  5. PRAVACHOL [Concomitant]
     Dosage: UNK
  6. GLIMEPIRIDE [Concomitant]
     Dosage: UNK
  7. OMEPRAZOLE [Concomitant]
     Dosage: UNK
  8. AMLODIPINE [Concomitant]
     Dosage: UNK
  9. METOPROLOL [Concomitant]
     Dosage: UNK
  10. SERTRALINE [Concomitant]
     Dosage: UNK
  11. ISOSORBIDE MONONITRATE [Concomitant]
     Dosage: UNK
  12. VITAMINS [Concomitant]
     Dosage: UNK

REACTIONS (4)
  - FALL [None]
  - LOSS OF CONSCIOUSNESS [None]
  - SWELLING [None]
  - VISUAL ACUITY REDUCED [None]
